FAERS Safety Report 22093306 (Version 1)
Quarter: 2023Q1

REPORT INFORMATION
  Report Type: Spontaneous
  Country: US (occurrence: None)
  Receive Date: 20230314
  Receipt Date: 20230314
  Transmission Date: 20230417
  Serious: No
  Sender: FDA-Public Use
  Company Number: None

PATIENT
  Age: 67 Year
  Sex: Female
  Weight: 76.29 kg

DRUGS (18)
  1. MEKINIST [Suspect]
     Active Substance: TRAMETINIB DIMETHYL SULFOXIDE
     Indication: Neoplasm malignant
     Dosage: FREQUENCY : DAILY;?
     Route: 048
     Dates: end: 20230228
  2. TAFINLAR [Suspect]
     Active Substance: DABRAFENIB MESYLATE
     Indication: Neoplasm malignant
     Dosage: FREQUENCY : TWICE A DAY;?
     Route: 048
     Dates: end: 20230228
  3. ALBUTEROL [Concomitant]
  4. ASPIRIN [Concomitant]
  5. BASAGLAR KWIKPEN [Concomitant]
  6. CALCIUM [Concomitant]
  7. CERTAVITE/ANTIOXIDANTS [Concomitant]
  8. HYDRALAZINE [Concomitant]
  9. KLOR-CON [Concomitant]
  10. LEVOTHYROXINE [Concomitant]
  11. MAGOX [Concomitant]
  12. NARCAN [Concomitant]
  13. NIFEDIPINE ER [Concomitant]
  14. NORCO [Concomitant]
  15. PROGRAF [Concomitant]
  16. REPATHA [Concomitant]
  17. TYLENOL [Concomitant]
  18. ZOFRAN [Concomitant]

REACTIONS (2)
  - Neoplasm malignant [None]
  - Malignant neoplasm progression [None]

NARRATIVE: CASE EVENT DATE: 20230228
